FAERS Safety Report 5923244-6 (Version None)
Quarter: 2008Q4

REPORT INFORMATION
  Report Type: 
  Country: None (occurrence: None)
  Receive Date: 20081020
  Receipt Date: 20081014
  Transmission Date: 20090506
  Serious: Yes (Other)
  Sender: FDA-Public Use
  Company Number: BR-BRISTOL-MYERS SQUIBB COMPANY-14373526

PATIENT
  Age: 56 Year
  Sex: Female

DRUGS (2)
  1. BARACLUDE [Suspect]
     Indication: HEPATITIS B
     Dosage: 0.5MG DAILY (HALF OF A 1MG TABLET);INTERRUPTED AFTER 15 DAYS
     Route: 048
     Dates: start: 20080801
  2. DIOVAN [Concomitant]

REACTIONS (1)
  - LACTIC ACIDOSIS [None]
